FAERS Safety Report 8222483-1 (Version None)
Quarter: 2012Q1

REPORT INFORMATION
  Report Type: 
  Country: None (occurrence: None)
  Receive Date: 20120320
  Receipt Date: 20120316
  Transmission Date: 20120608
  Serious: Yes (Hospitalization)
  Sender: FDA-Public Use
  Company Number: PHHY2011JP113017

PATIENT
  Sex: Female

DRUGS (2)
  1. PACLITAXEL [Suspect]
  2. ZOMETA [Suspect]
     Indication: BREAST CANCER
     Route: 041

REACTIONS (1)
  - INTERSTITIAL LUNG DISEASE [None]
